FAERS Safety Report 5798517-0 (Version None)
Quarter: 2008Q3

REPORT INFORMATION
  Report Type: 
  Country: None (occurrence: None)
  Receive Date: 20080702
  Receipt Date: 20080624
  Transmission Date: 20090109
  Serious: Yes (Other)
  Sender: FDA-Public Use
  Company Number: US-MERCK-0806USA01345

PATIENT
  Age: 52 Year
  Sex: Female
  Weight: 68 kg

DRUGS (6)
  1. SINGULAIR [Suspect]
     Indication: HYPERSENSITIVITY
     Route: 048
     Dates: start: 20080227, end: 20080101
  2. PREVACID [Concomitant]
     Indication: GASTROOESOPHAGEAL REFLUX DISEASE
     Route: 048
  3. ZANTAC [Concomitant]
     Indication: GASTROOESOPHAGEAL REFLUX DISEASE
     Route: 048
  4. LORAZEPAM [Concomitant]
     Indication: INSOMNIA
     Route: 048
  5. ALLEGRA [Concomitant]
     Indication: RHINITIS ALLERGIC
     Route: 048
  6. NASONEX [Concomitant]

REACTIONS (1)
  - SUICIDAL IDEATION [None]
